FAERS Safety Report 6748117-0 (Version None)
Quarter: 2010Q2

REPORT INFORMATION
  Report Type: 
  Country: None (occurrence: None)
  Receive Date: 20100531
  Receipt Date: 20100525
  Transmission Date: 20101027
  Serious: Yes (Hospitalization)
  Sender: FDA-Public Use
  Company Number: JP-BRISTOL-MYERS SQUIBB COMPANY-15080674

PATIENT
  Age: 50 Year
  Sex: Male
  Weight: 62 kg

DRUGS (3)
  1. ERBITUX [Suspect]
     Indication: COLON CANCER
     Dosage: 700MG (1/1WK) ON 27JAN2010 RESUMED ON 10MAR2010 (445 MG/DAY)
     Route: 042
     Dates: start: 20100127
  2. POLARAMINE [Concomitant]
     Indication: PREMEDICATION
     Route: 042
     Dates: start: 20100127
  3. DEXART [Concomitant]
     Indication: PREMEDICATION
     Route: 042
     Dates: start: 20100127

REACTIONS (2)
  - CONVULSION [None]
  - DECREASED APPETITE [None]
